FAERS Safety Report 7334446-9 (Version None)
Quarter: 2011Q1

REPORT INFORMATION
  Report Type: 
  Country: None (occurrence: None)
  Receive Date: 20110307
  Receipt Date: 20110222
  Transmission Date: 20110831
  Serious: Yes (Death, Hospitalization)
  Sender: FDA-Public Use
  Company Number: US-CELGENEUS-163-21880-11012732

PATIENT
  Sex: Female
  Weight: 75.818 kg

DRUGS (23)
  1. ATIVAN [Concomitant]
     Dosage: 1 MILLIGRAM
     Route: 065
  2. ACYCLOVIR [Concomitant]
     Dosage: 200 MILLIGRAM
     Route: 065
  3. PROAIR HFA [Concomitant]
     Route: 065
  4. ZOFRAN [Concomitant]
     Indication: NAUSEA
     Route: 065
  5. OXYCONTIN [Concomitant]
     Indication: PAIN
     Route: 065
  6. CALCARB [Concomitant]
     Dosage: 500 MILLIGRAM
     Route: 065
  7. REVLIMID [Suspect]
     Dosage: 7.5 MILLIGRAM
     Route: 048
     Dates: start: 20101223, end: 20110110
  8. BENDAMUSTINE [Concomitant]
     Route: 065
     Dates: start: 20101216
  9. COMPAZINE [Concomitant]
     Indication: NAUSEA
     Route: 065
  10. BACTRIM [Concomitant]
     Dosage: DOUBLE STRENGTH
     Route: 065
  11. ALLOPURINOL [Concomitant]
     Dosage: 300 MILLIGRAM
     Route: 065
  12. SYNTHROID [Concomitant]
     Dosage: 150 MICROGRAM
     Route: 065
  13. PROTONIX [Concomitant]
     Dosage: 40 MILLIGRAM
     Route: 065
  14. CALCARB [Concomitant]
     Dosage: 1 TABLET
     Route: 065
  15. SOLU-MEDROL [Concomitant]
     Dosage: 2 GRAM
     Route: 051
  16. ROCALTROL [Concomitant]
     Dosage: .5 MILLIGRAM
     Route: 065
  17. PREDNISONE [Concomitant]
     Dosage: 100 MILLIGRAM
     Route: 065
  18. COUMADIN [Concomitant]
     Route: 065
  19. REVLIMID [Suspect]
     Indication: MULTIPLE MYELOMA
     Dosage: 25 MILLIGRAM
     Route: 048
     Dates: start: 20090601
  20. DILAUDID [Concomitant]
     Indication: PAIN
     Dosage: 2 TABLETS
     Route: 048
  21. FLUCONAZOLE [Concomitant]
     Dosage: 100 MILLIGRAM
     Route: 065
  22. LEVAQUIN [Concomitant]
     Dosage: 250 MILLIGRAM
     Route: 065
  23. STOOL SOFTENER [Concomitant]
     Route: 065

REACTIONS (4)
  - DISEASE RECURRENCE [None]
  - HYPERURICAEMIA [None]
  - RENAL FAILURE [None]
  - HYPERCALCAEMIA [None]
